FAERS Safety Report 6713878-3 (Version None)
Quarter: 2010Q2

REPORT INFORMATION
  Report Type: 
  Country: None (occurrence: None)
  Receive Date: 20100506
  Receipt Date: 20100426
  Transmission Date: 20101027
  Serious: Yes (Other)
  Sender: FDA-Public Use
  Company Number: US-PFIZER INC-2010020083

PATIENT
  Sex: Female
  Weight: 83 kg

DRUGS (3)
  1. LIPITOR [Suspect]
     Indication: BLOOD CHOLESTEROL INCREASED
     Dosage: 40 MG, UNK
     Route: 048
     Dates: start: 20000101, end: 20090201
  2. PROTONIX [Concomitant]
     Indication: GASTROOESOPHAGEAL REFLUX DISEASE
     Dosage: UNK
  3. SYNTHROID [Concomitant]
     Indication: THYROID DISORDER
     Dosage: UNK

REACTIONS (8)
  - DRUG HYPERSENSITIVITY [None]
  - EMOTIONAL DISTRESS [None]
  - FEAR [None]
  - HEADACHE [None]
  - NEURALGIA [None]
  - PALPITATIONS [None]
  - RASH MACULAR [None]
  - SYSTEMIC LUPUS ERYTHEMATOSUS [None]
